FAERS Safety Report 8847404 (Version 2)
Quarter: 2012Q4

REPORT INFORMATION
  Report Type: 
  Country: US (occurrence: US)
  Receive Date: 20121018
  Receipt Date: 20121121
  Transmission Date: 20130627
  Serious: No
  Sender: FDA-Public Use
  Company Number: US-PFIZER INC-2012258263

PATIENT
  Sex: Female

DRUGS (2)
  1. LIPITOR [Suspect]
     Dosage: UNK
  2. GLUCOTROL [Suspect]
     Dosage: UNK

REACTIONS (2)
  - Hepatic enzyme abnormal [Unknown]
  - Product label confusion [Unknown]
